FAERS Safety Report 20863339 (Version 3)
Quarter: 2022Q2

REPORT INFORMATION
  Report Type: Spontaneous
  Country: US (occurrence: US)
  Receive Date: 20220523
  Receipt Date: 20220617
  Transmission Date: 20220721
  Serious: No
  Sender: FDA-Public Use
  Company Number: US-PFIZER INC-202200629617

PATIENT
  Age: 75 Year
  Sex: Female
  Weight: 102.49 kg

DRUGS (1)
  1. PAXLOVID [Suspect]
     Active Substance: NIRMATRELVIR\RITONAVIR
     Indication: COVID-19 treatment
     Dosage: [PF-07321332 300 MG]/[RITONAVIR 100 MG]; 2X/DAY/TAKE ALL THE 3 TABLETS AT THE SAME TIME FROM THE MOR
     Dates: start: 20220425, end: 20220429

REACTIONS (2)
  - Dysgeusia [Recovered/Resolved]
  - Product taste abnormal [Unknown]

NARRATIVE: CASE EVENT DATE: 20220425
